FAERS Safety Report 8799002 (Version 1)
Quarter: 2012Q4

REPORT INFORMATION
  Report Type: 
  Country: JP (occurrence: JP)
  Receive Date: 20120920
  Receipt Date: 20120920
  Transmission Date: 20130627
  Serious: Yes (Hospitalization)
  Sender: FDA-Public Use
  Company Number: JP-009507513-1207JPN011037

PATIENT
  Age: 57 Year
  Sex: Male
  Weight: 49 kg

DRUGS (8)
  1. PEGINTRON [Suspect]
     Indication: HEPATITIS C
     Dosage: 80 Microgram per kilogram, qw
     Route: 058
     Dates: start: 20120719
  2. PEGINTRON [Suspect]
     Dosage: UNK
     Route: 058
     Dates: start: 2012
  3. REBETOL [Suspect]
     Indication: HEPATITIS C
     Dosage: 400 mg, bid
     Route: 048
     Dates: start: 20120719
  4. REBETOL [Suspect]
     Dosage: UNK
     Route: 048
  5. ZYLORIC [Concomitant]
     Route: 048
  6. ALLEGRA [Concomitant]
     Route: 048
  7. [COMPOSITION UNSPECIFIED] [Concomitant]
  8. MYSER (DIFLUPREDNATE) [Concomitant]

REACTIONS (1)
  - Drug eruption [Recovered/Resolved]
